FAERS Safety Report 17562137 (Version 11)
Quarter: 2023Q2

REPORT INFORMATION
  Report Type: Spontaneous
  Country: LT (occurrence: LT)
  Receive Date: 20200319
  Receipt Date: 20230517
  Transmission Date: 20230722
  Serious: Yes (Hospitalization, Other)
  Sender: FDA-Public Use
  Company Number: None

PATIENT
  Age: 32 Year
  Sex: Male

DRUGS (29)
  1. METOPROLOL SUCCINATE [Suspect]
     Active Substance: METOPROLOL SUCCINATE
     Indication: Product used for unknown indication
     Dosage: 150 MG, QD
     Route: 065
  2. METOPROLOL SUCCINATE [Suspect]
     Active Substance: METOPROLOL SUCCINATE
     Dosage: 47.5 MG, QD (REDUCED DOSE)
     Route: 065
  3. OMEPRAZOLE [Suspect]
     Active Substance: OMEPRAZOLE
     Indication: Product used for unknown indication
     Dosage: 20 MG, QD
     Route: 065
  4. TACROLIMUS [Interacting]
     Active Substance: TACROLIMUS
     Indication: Immunosuppression
     Dosage: 6 MG, QD
     Route: 065
  5. DOXAZOSIN MESYLATE [Suspect]
     Active Substance: DOXAZOSIN MESYLATE
     Indication: Product used for unknown indication
     Dosage: 4 MG, QD (BEFORE SLEEP)
     Route: 065
  6. VALGANCICLOVIR HYDROCHLORIDE [Suspect]
     Active Substance: VALGANCICLOVIR HYDROCHLORIDE
     Indication: Product used for unknown indication
     Dosage: 450 MG, QD
     Route: 065
  7. FOSINOPRIL [Suspect]
     Active Substance: FOSINOPRIL
     Indication: Product used for unknown indication
     Dosage: 10 MILLIGRAM, QD
     Route: 065
  8. FOSINOPRIL [Suspect]
     Active Substance: FOSINOPRIL
     Dosage: 10 MG, 2X PER DAY
     Route: 065
  9. METHYLPREDNISOLONE [Interacting]
     Active Substance: METHYLPREDNISOLONE
     Indication: Immunosuppression
     Dosage: 4 MG, QD (EVERY MORNING)
     Route: 065
  10. METHYLPREDNISOLONE [Interacting]
     Active Substance: METHYLPREDNISOLONE
     Dosage: 8 MG, BID
     Route: 065
  11. QUETIAPINE [Suspect]
     Active Substance: QUETIAPINE
     Indication: Schizophrenia
     Dosage: UPTO 150 PER DAY
     Route: 065
     Dates: start: 2018
  12. QUETIAPINE [Suspect]
     Active Substance: QUETIAPINE
     Dosage: 400 MG (DOSE INCREASED TO 700 MG)
     Route: 065
  13. QUETIAPINE [Suspect]
     Active Substance: QUETIAPINE
     Dosage: DOSE INCREASED TO 700 MG
     Route: 065
  14. PALIPERIDONE [Interacting]
     Active Substance: PALIPERIDONE
     Indication: Schizophrenia
     Dosage: 100 MILLIGRAM, MONTHLY
     Route: 065
  15. CLOZAPINE [Interacting]
     Active Substance: CLOZAPINE
     Indication: Schizophrenia
     Dosage: 50 MILLIGRAM, QD
     Route: 065
  16. MYCOPHENOLATE MOFETIL [Interacting]
     Active Substance: MYCOPHENOLATE MOFETIL
     Indication: Immunosuppressant drug therapy
     Dosage: 1000 MG, Q12H (1000 MG IN THE EVENING)
     Route: 065
  17. MYCOPHENOLATE MOFETIL [Interacting]
     Active Substance: MYCOPHENOLATE MOFETIL
     Dosage: 500 MG, Q12H (500 MG IN THE MORNING)
     Route: 065
  18. MYCOPHENOLATE MOFETIL [Interacting]
     Active Substance: MYCOPHENOLATE MOFETIL
     Dosage: 2000 MG, QD (MORNING AND EVENING)
     Route: 065
  19. MYCOPHENOLATE MOFETIL [Interacting]
     Active Substance: MYCOPHENOLATE MOFETIL
     Dosage: 500 MG IN THE MORNING
     Route: 065
  20. MYCOPHENOLATE MOFETIL [Interacting]
     Active Substance: MYCOPHENOLATE MOFETIL
     Dosage: 1000 MG IN THE EVENING
     Route: 065
  21. MYCOPHENOLATE MOFETIL [Interacting]
     Active Substance: MYCOPHENOLATE MOFETIL
     Dosage: 3000 MG, QD(500 MG IN THE MORNING, 1000 MG IN THE EVENING)
     Route: 065
  22. AMLODIPINE [Suspect]
     Active Substance: AMLODIPINE BESYLATE
     Indication: Product used for unknown indication
     Dosage: 10 MG, QD
     Route: 065
  23. LERCANIDIPINE HYDROCHLORIDE [Suspect]
     Active Substance: LERCANIDIPINE HYDROCHLORIDE
     Indication: Product used for unknown indication
     Dosage: 10 MG, QD
     Route: 065
  24. TIAPRIDE [Suspect]
     Active Substance: TIAPRIDE
     Indication: Schizophrenia
     Dosage: 150 MG, PER DAY
     Route: 065
     Dates: start: 2018
  25. TIAPRIDE [Suspect]
     Active Substance: TIAPRIDE
     Dosage: 100 MG, QD
     Route: 065
  26. MOXONIDINE [Suspect]
     Active Substance: MOXONIDINE
     Indication: Product used for unknown indication
     Dosage: 0.4 MG, QD
     Route: 065
  27. OLANZAPINE [Suspect]
     Active Substance: OLANZAPINE
     Indication: Schizophrenia
     Dosage: UNK
     Route: 065
  28. RISPERIDONE [Suspect]
     Active Substance: RISPERIDONE
     Indication: Schizophrenia
     Dosage: UNK
     Route: 065
  29. ALLOPURINOL [Suspect]
     Active Substance: ALLOPURINOL
     Indication: Product used for unknown indication
     Dosage: IN THE MORNING
     Route: 065

REACTIONS (18)
  - Neuroleptic malignant syndrome [Unknown]
  - Behaviour disorder [Recovered/Resolved]
  - Schizophrenia [Unknown]
  - Therapeutic response changed [Recovered/Resolved]
  - Confusional state [Unknown]
  - Condition aggravated [Recovered/Resolved]
  - Loss of consciousness [Unknown]
  - Drug interaction [Unknown]
  - Paradoxical drug reaction [Unknown]
  - Asthenia [Unknown]
  - Drug resistance [Unknown]
  - Delusional disorder, unspecified type [Recovered/Resolved]
  - Drug ineffective [Recovered/Resolved]
  - Inappropriate affect [Recovered/Resolved]
  - Insomnia [Recovered/Resolved]
  - Apathy [Recovered/Resolved]
  - Delusion [Recovered/Resolved]
  - Thinking abnormal [Not Recovered/Not Resolved]
